FAERS Safety Report 21667547 (Version 4)
Quarter: 2022Q4

REPORT INFORMATION
  Report Type: Spontaneous
  Country: US (occurrence: US)
  Receive Date: 20221201
  Receipt Date: 20221227
  Transmission Date: 20230112
  Serious: No
  Sender: FDA-Public Use
  Company Number: US-UNITED THERAPEUTICS-UNT-2022-028828

PATIENT
  Sex: Male
  Weight: 75.737 kg

DRUGS (3)
  1. REMODULIN [Suspect]
     Active Substance: TREPROSTINIL
     Indication: Pulmonary arterial hypertension
     Dosage: UNK, CONTINUING
     Route: 058
     Dates: start: 20220506
  2. REMODULIN [Suspect]
     Active Substance: TREPROSTINIL
     Dosage: 0.040 ?G/KG, CONTINUING (PHARMACY FILLED WITH 2ML PER CASSETTE; PUMP RATE 20MCL PER HOUR)
     Route: 058
     Dates: start: 2022
  3. REMODULIN [Suspect]
     Active Substance: TREPROSTINIL
     Dosage: UNK, CONTINUING
     Route: 058
     Dates: start: 2022

REACTIONS (11)
  - Device malfunction [Recovered/Resolved]
  - Infection [Unknown]
  - Infusion site reaction [Unknown]
  - Device issue [Unknown]
  - Device infusion issue [Unknown]
  - Device failure [Unknown]
  - Infusion site swelling [Unknown]
  - Infusion site erythema [Unknown]
  - Product quality issue [Unknown]
  - Product odour abnormal [Unknown]
  - Device failure [Unknown]

NARRATIVE: CASE EVENT DATE: 20220101
